FAERS Safety Report 8871582 (Version 2)
Quarter: 2013Q2

REPORT INFORMATION
  Report Type: Spontaneous
  Country: US (occurrence: None)
  Receive Date: 20120426
  Receipt Date: 20120703
  Transmission Date: 20140414
  Serious: Yes (Hospitalization)
  Sender: FDA-Public Use
  Company Number: PHEH2012US004848

PATIENT
  Age: 42 Year
  Sex: Female

DRUGS (4)
  1. GILENYA [Suspect]
     Indication: MULTIPLE SCLEROSIS
     Dosage: , ORAL
     Route: 048
  2. PERCOCET (OXYCODONE HYDROCHLORIDE, PARACETAMOL) [Concomitant]
  3. MEDROL (METHYLPREDNISOLONE) [Concomitant]
  4. CIPRO (CIPROFLOXACIN HYDROCHLORIDE), 500 MG [Concomitant]

REACTIONS (39)
  - Pneumonia [None]
  - Hypertonic bladder [None]
  - Constipation [None]
  - Pain [None]
  - Hypoaesthesia [None]
  - Torticollis [None]
  - Skin exfoliation [None]
  - Fibromyalgia [None]
  - Malaise [None]
  - Pain in extremity [None]
  - Oedema peripheral [None]
  - Injury [None]
  - White blood cell count increased [None]
  - Chills [None]
  - Headache [None]
  - Asthenia [None]
  - Muscle spasms [None]
  - Sinusitis [None]
  - Alopecia [None]
  - Respiratory tract infection [None]
  - Pulmonary congestion [None]
  - Purulence [None]
  - Increased upper airway secretion [None]
  - Wheezing [None]
  - Ligament sprain [None]
  - Chest X-ray abnormal [None]
  - Spinal cord herniation [None]
  - Vulvovaginal dryness [None]
  - Sleep disorder [None]
  - Feeling abnormal [None]
  - Blood pressure decreased [None]
  - Fatigue [None]
  - Fall [None]
  - Torticollis [None]
  - Skin exfoliation [None]
  - Injury [None]
  - Cough [None]
  - Nasal congestion [None]
  - Sinus headache [None]
